FAERS Safety Report 5155617-6 (Version None)
Quarter: 2006Q4

REPORT INFORMATION
  Report Type: 
  Country: None (occurrence: None)
  Receive Date: 20061114
  Receipt Date: 20061030
  Transmission Date: 20070319
  Serious: Yes (Other)
  Sender: FDA-Public Use
  Company Number: 2006132964

PATIENT
  Age: 56 Year
  Sex: Male
  Weight: 56.5 kg

DRUGS (5)
  1. SUTENT [Suspect]
     Indication: METASTATIC RENAL CELL CARCINOMA
     Dosage: 50 MG (50 MG, 1 IN 1 D)/4 WEEKS AGO
     Dates: end: 20061022
  2. PREDNISONE TAB [Concomitant]
  3. OXYCODONE HCL [Concomitant]
  4. REMERON [Concomitant]
  5. REGLAN [Concomitant]

REACTIONS (8)
  - ASTHENIA [None]
  - BLOOD CREATININE DECREASED [None]
  - DIARRHOEA [None]
  - DYSPNOEA [None]
  - HYPOXIA [None]
  - MALAISE [None]
  - RENAL FAILURE [None]
  - WEIGHT DECREASED [None]
